FAERS Safety Report 7455509 (Version 4)
Quarter: 2013Q1

REPORT INFORMATION
  Report Type: Report from Study
  Country: KR (occurrence: KR)
  Receive Date: 20100707
  Receipt Date: 20130315
  Transmission Date: 20140127
  Serious: Yes (Death, Life-Threatening, Hospitalization)
  Sender: FDA-Public Use
  Company Number: KR-BAYER-201030175GPV

PATIENT
  Age: 67 Year
  Sex: Male
  Weight: 77.2 kg

DRUGS (18)
  1. SORAFENIB [Suspect]
     Indication: HEPATOCELLULAR CARCINOMA
     Route: 048
     Dates: start: 20100614, end: 20100620
  2. SORAFENIB [Suspect]
     Indication: HEPATOCELLULAR CARCINOMA
     Route: 048
     Dates: start: 20100621, end: 20100623
  3. SORAFENIB [Suspect]
     Indication: HEPATOCELLULAR CARCINOMA
     Route: 048
     Dates: start: 20100629, end: 20100712
  4. CILOSTAZOL [Concomitant]
     Dosage: 100 MG (DAILY DOSE), QD, ORAL
     Route: 048
     Dates: start: 20100604, end: 20100709
  5. NIFEDIPINE [Concomitant]
     Dosage: 30 MG (DAILY DOSE)
     Route: 048
     Dates: start: 20100604, end: 20100708
  6. BETAXOLOL [Concomitant]
     Dosage: 10 MG (DAILY DOSE), QD, ORAL
     Route: 048
     Dates: start: 20100604, end: 20100624
  7. URSODEOXYCHOLIC ACID [Concomitant]
     Dosage: 400 MG (DAILY DOSE), QD, ORAL
     Route: 048
     Dates: start: 20100604, end: 20100624
  8. SILYMARIN [Concomitant]
     Dosage: 280 MG (DAILY DOSE), QD, ORAL
     Route: 048
     Dates: start: 20100604, end: 20100624
  9. MAGMIL [Concomitant]
     Dosage: 500 MG (DAILY DOSE), QD, ORAL
     Route: 048
     Dates: start: 20100604, end: 20100624
  10. REBAMIPIDE [Concomitant]
     Dosage: 300 MG (DAILY DOSE)
     Route: 048
     Dates: start: 20100621, end: 20100624
  11. DUPHALAC [Concomitant]
     Dosage: 90 ML (DAILY DOSE), QD, ORAL
     Route: 048
     Dates: start: 20100616, end: 20100820
  12. FUROSEMIDE [Concomitant]
     Dosage: 20 MG (DAILY DOSE), QD, ORAL
     Route: 048
     Dates: start: 20100621, end: 20100623
  13. SUCRALFATE [Concomitant]
     Dosage: 1G/DAT
     Dates: start: 20100623, end: 20100623
  14. HUMALIN [Concomitant]
     Dosage: 10 IU (DAILY DOSE), QD, SUBCUTANEOUS
     Route: 058
     Dates: start: 20100601, end: 20100603
  15. LANTUS [Concomitant]
     Dosage: 16 IU (DAILY DOSE), QD, SUBCUTANEOUS
     Route: 058
     Dates: start: 20100605, end: 20100607
  16. ALBUMIN [Concomitant]
     Dosage: 20%
     Route: 042
     Dates: start: 20100609, end: 20100611
  17. FREAMINE III NOS [Concomitant]
     Dosage: 10%
     Route: 042
     Dates: start: 20100610, end: 20100611
  18. LEVODROPROPIZINE [Concomitant]
     Dosage: 6 ML (DAILY DOSE), QD,
     Dates: start: 20100710, end: 20100712

REACTIONS (1)
  - Hepatic encephalopathy [Fatal]
